FAERS Safety Report 25093411 (Version 3)
Quarter: 2025Q2

REPORT INFORMATION
  Report Type: Spontaneous
  Country: US (occurrence: US)
  Receive Date: 20250319
  Receipt Date: 20250520
  Transmission Date: 20250716
  Serious: No
  Sender: LEO PHARM
  Company Number: US-LEO Pharma-378441

PATIENT
  Age: 37 Year
  Sex: Female

DRUGS (1)
  1. ADBRY [Suspect]
     Active Substance: TRALOKINUMAB-LDRM
     Indication: Dermatitis atopic
     Dosage: TREATMENT REPORTED AS ONGOING
     Route: 058
     Dates: start: 202501

REACTIONS (5)
  - Vision blurred [Unknown]
  - Drug ineffective [Unknown]
  - Muscle spasms [Unknown]
  - Abdominal discomfort [Unknown]
  - Weight decreased [Unknown]
